FAERS Safety Report 11657283 (Version 3)
Quarter: 2015Q4

REPORT INFORMATION
  Report Type: Report from Study
  Country: AU (occurrence: AU)
  Receive Date: 20151023
  Receipt Date: 20151104
  Transmission Date: 20160304
  Serious: Yes (Other)
  Sender: FDA-Public Use
  Company Number: AU-ABBVIE-15P-008-1483082-00

PATIENT
  Age: 71 Year
  Sex: Male

DRUGS (1)
  1. LUCRIN [Suspect]
     Active Substance: LEUPROLIDE ACETATE
     Indication: PROSTATE CANCER
     Route: 065
     Dates: start: 20140201

REACTIONS (3)
  - Pain [Unknown]
  - Bone cancer [Unknown]
  - Insomnia [Unknown]

NARRATIVE: CASE EVENT DATE: 20150915
